FAERS Safety Report 6037436-1 (Version None)
Quarter: 2009Q1

REPORT INFORMATION
  Report Type: 
  Country: None (occurrence: None)
  Receive Date: 20090114
  Receipt Date: 20090105
  Transmission Date: 20090719
  Serious: Yes (Death)
  Sender: FDA-Public Use
  Company Number: PH-BAXTER-2009BH000477

PATIENT
  Age: 72 Year
  Sex: Male

DRUGS (6)
  1. DIANEAL [Suspect]
     Indication: RENAL DISORDER
     Route: 033
     Dates: start: 20080606
  2. PLAVIX [Concomitant]
     Indication: DRUG USE FOR UNKNOWN INDICATION
     Route: 065
     Dates: start: 20081208, end: 20081226
  3. LIFESAR [Concomitant]
     Indication: DRUG USE FOR UNKNOWN INDICATION
     Route: 065
     Dates: start: 20081208, end: 20081218
  4. KETOSTERILE [Concomitant]
     Indication: DRUG USE FOR UNKNOWN INDICATION
     Route: 065
     Dates: start: 20081208, end: 20081226
  5. MICARDIS [Concomitant]
     Indication: DRUG USE FOR UNKNOWN INDICATION
     Route: 065
     Dates: start: 20081208, end: 20081220
  6. CLAZOL [Concomitant]
     Indication: DRUG USE FOR UNKNOWN INDICATION
     Route: 065
     Dates: start: 20081208, end: 20081220

REACTIONS (4)
  - CARDIAC ARREST [None]
  - LYMPHOMA [None]
  - PNEUMONIA [None]
  - RENAL FAILURE [None]
